FAERS Safety Report 17744834 (Version 2)
Quarter: 2020Q2

REPORT INFORMATION
  Report Type: Spontaneous
  Country: US (occurrence: US)
  Receive Date: 20200505
  Receipt Date: 20200520
  Transmission Date: 20200714
  Serious: No
  Sender: FDA-Public Use
  Company Number: US-PFIZER INC-2020179027

PATIENT
  Age: 63 Year
  Sex: Male

DRUGS (1)
  1. LYRICA [Suspect]
     Active Substance: PREGABALIN
     Indication: SPINAL OSTEOARTHRITIS
     Dosage: 150 MG, 3X/DAY

REACTIONS (5)
  - Off label use [Unknown]
  - Therapeutic product effect incomplete [Unknown]
  - Poor quality sleep [Unknown]
  - Product use in unapproved indication [Unknown]
  - Anxiety [Unknown]
